FAERS Safety Report 23643461 (Version 2)
Quarter: 2024Q2

REPORT INFORMATION
  Report Type: Spontaneous
  Country: CA (occurrence: CA)
  Receive Date: 20240318
  Receipt Date: 20240510
  Transmission Date: 20240716
  Serious: Yes (Other)
  Sender: FDA-Public Use
  Company Number: CA-PFIZER INC-202400061603

PATIENT
  Age: 15 Year
  Sex: Female

DRUGS (2)
  1. ABRILADA [Suspect]
     Active Substance: ADALIMUMAB-AFZB
     Indication: Juvenile idiopathic arthritis
     Dosage: 40 MG EVERY 2 WEEKS, PREFILLED PEN
     Route: 058
     Dates: start: 20231208
  2. NAPROXEN [Concomitant]
     Active Substance: NAPROXEN
     Dosage: 1 DF

REACTIONS (1)
  - Knee operation [Recovering/Resolving]
